FAERS Safety Report 25865786 (Version 1)
Quarter: 2025Q3

REPORT INFORMATION
  Report Type: Spontaneous
  Country: BR (occurrence: BR)
  Receive Date: 20250930
  Receipt Date: 20250930
  Transmission Date: 20251021
  Serious: Yes (Death)
  Sender: INCYTE
  Company Number: BR-002147023-NVSC2025BR151069

PATIENT
  Age: 80 Year

DRUGS (1)
  1. RUXOLITINIB [Suspect]
     Active Substance: RUXOLITINIB
     Indication: Polycythaemia vera
     Route: 065

REACTIONS (2)
  - Death [Fatal]
  - Infection [Unknown]
